FAERS Safety Report 8913241 (Version 1)
Quarter: 2012Q4

REPORT INFORMATION
  Report Type: 
  Country: US (occurrence: US)
  Receive Date: 20121119
  Receipt Date: 20121119
  Transmission Date: 20130627
  Serious: Yes (Hospitalization, Other)
  Sender: FDA-Public Use
  Company Number: US-AMGEN-USASP2012073515

PATIENT
  Age: 82 Year
  Sex: Female

DRUGS (2)
  1. ENBREL [Suspect]
     Indication: RHEUMATOID ARTHRITIS
     Dosage: 50mg every other week
     Dates: start: 20090501, end: 20120906
  2. METHOTREXATE [Concomitant]
     Dosage: UNK

REACTIONS (2)
  - Palpitations [Recovered/Resolved]
  - Pneumonia [Not Recovered/Not Resolved]
